FAERS Safety Report 7164679-6 (Version None)
Quarter: 2010Q4

REPORT INFORMATION
  Report Type: 
  Country: None (occurrence: None)
  Receive Date: 20101215
  Receipt Date: 20101207
  Transmission Date: 20110411
  Serious: Yes (Other)
  Sender: FDA-Public Use
  Company Number: JP-B.I. PHARMACEUTICALS,INC./RIDGEFIELD-2010-BP-14343YA

PATIENT
  Age: 79 Year
  Sex: Male

DRUGS (8)
  1. TAMSULOSIN HCL [Suspect]
     Route: 048
  2. LIPITOR [Suspect]
     Route: 048
  3. LIPITOR [Suspect]
     Route: 048
  4. OTC SINUS DRUG [Suspect]
     Indication: RHINITIS ALLERGIC
     Route: 048
     Dates: start: 20100119
  5. ASPIRIN [Concomitant]
     Route: 048
  6. CONIEL (BENIDIPINE HYDROCHLORIDE) [Concomitant]
     Route: 048
  7. ZESTRIL [Concomitant]
     Route: 048
  8. ALLOPURINOL [Concomitant]
     Route: 048

REACTIONS (3)
  - RENAL FAILURE [None]
  - RHABDOMYOLYSIS [None]
  - URINARY INCONTINENCE [None]
